FAERS Safety Report 24995301 (Version 1)
Quarter: 2025Q1

REPORT INFORMATION
  Report Type: Spontaneous
  Country: US (occurrence: US)
  Receive Date: 20250221
  Receipt Date: 20250221
  Transmission Date: 20250409
  Serious: No
  Sender: BAYER HEALTHCARE PHARMACEUTICALS INC.
  Company Number: US-BAYER-2025A023893

PATIENT
  Age: 47 Year
  Sex: Female

DRUGS (2)
  1. KYLEENA [Suspect]
     Active Substance: LEVONORGESTREL
     Indication: Breast cancer
     Dosage: 17.5?G/DAY
     Route: 015
     Dates: start: 202402
  2. RINVOQ [Concomitant]
     Active Substance: UPADACITINIB

REACTIONS (4)
  - Impaired work ability [None]
  - Gait inability [None]
  - Abdominal pain lower [None]
  - Device use issue [None]
